FAERS Safety Report 10889978 (Version 3)
Quarter: 2015Q3

REPORT INFORMATION
  Report Type: Report from Study
  Country: JP (occurrence: JP)
  Receive Date: 20150305
  Receipt Date: 20150812
  Transmission Date: 20151125
  Serious: Yes (Hospitalization, Other)
  Sender: FDA-Public Use
  Company Number: JP-ROCHE-1547979

PATIENT
  Age: 3 Year
  Sex: Female
  Weight: 14 kg

DRUGS (10)
  1. TEMODAL [Concomitant]
     Active Substance: TEMOZOLOMIDE
     Indication: MALIGNANT GLIOMA
     Route: 041
     Dates: start: 20140626, end: 20140630
  2. DEXART [Concomitant]
     Active Substance: DEXAMETHASONE SODIUM PHOSPHATE
     Indication: MALIGNANT GLIOMA
     Route: 065
     Dates: start: 20140609, end: 20140616
  3. BEVACIZUMAB [Suspect]
     Active Substance: BEVACIZUMAB
     Indication: MALIGNANT GLIOMA
     Route: 041
     Dates: start: 20140709, end: 20140709
  4. BEVACIZUMAB [Suspect]
     Active Substance: BEVACIZUMAB
     Indication: MALIGNANT GLIOMA
     Route: 041
     Dates: start: 20140611, end: 20140611
  5. TEMODAL [Concomitant]
     Active Substance: TEMOZOLOMIDE
     Indication: MALIGNANT GLIOMA
     Route: 041
     Dates: start: 20140522, end: 20140526
  6. BEVACIZUMAB [Suspect]
     Active Substance: BEVACIZUMAB
     Indication: MALIGNANT GLIOMA
     Route: 041
     Dates: start: 20140528, end: 20140528
  7. BEVACIZUMAB [Suspect]
     Active Substance: BEVACIZUMAB
     Indication: MALIGNANT GLIOMA
     Route: 041
     Dates: start: 20140807, end: 20140807
  8. DEXART [Concomitant]
     Active Substance: DEXAMETHASONE SODIUM PHOSPHATE
     Indication: MALIGNANT GLIOMA
     Route: 065
     Dates: start: 20140523, end: 20140608
  9. DEXART [Concomitant]
     Active Substance: DEXAMETHASONE SODIUM PHOSPHATE
     Indication: MALIGNANT GLIOMA
     Route: 065
     Dates: start: 20140617, end: 20140807
  10. TEMODAL [Concomitant]
     Active Substance: TEMOZOLOMIDE
     Route: 041
     Dates: start: 20140807, end: 20140811

REACTIONS (2)
  - Hepatic function abnormal [Recovered/Resolved]
  - Inadequate diet [Not Recovered/Not Resolved]

NARRATIVE: CASE EVENT DATE: 20140529
